FAERS Safety Report 18814264 (Version 1)
Quarter: 2021Q1

REPORT INFORMATION
  Report Type: Spontaneous
  Country: US (occurrence: US)
  Receive Date: 20210126
  Receipt Date: 20210126
  Transmission Date: 20210419
  Serious: No
  Sender: FDA-Public Use
  Company Number: None

PATIENT
  Age: 77 Year
  Sex: Male
  Weight: 77.56 kg

DRUGS (12)
  1. BUPROPION 24HR?XL [Concomitant]
  2. MULTIPLE VITAMINS?MINERALS (CENTRUM SILVER ULTRA MENS) [Concomitant]
  3. MOMETASONE 0.1% OINTMENT [Concomitant]
  4. ROSUVASTATIN. [Concomitant]
     Active Substance: ROSUVASTATIN
  5. ASCORBIC ACID (VITAMIN C) [Concomitant]
     Active Substance: ASCORBIC ACID
  6. VITAMIN E [Concomitant]
     Active Substance: .ALPHA.-TOCOPHEROL
  7. AMLODIPINE [Concomitant]
     Active Substance: AMLODIPINE BESYLATE
  8. ELIGARD [Suspect]
     Active Substance: LEUPROLIDE ACETATE
  9. BENAZEPRIL [Concomitant]
     Active Substance: BENAZEPRIL HYDROCHLORIDE
  10. CALCIUM CHOLECALCIFEROL (VITAMIN D) [Concomitant]
  11. AMILORIDE/HYDROCHLOROTHIAZIDE [Concomitant]
     Active Substance: AMILORIDE HYDROCHLORIDE\HYDROCHLOROTHIAZIDE
  12. CALCIUM POLYCARBOPHIL (FIBER?CAPS) [Concomitant]

REACTIONS (3)
  - Erythema [None]
  - Peripheral swelling [None]
  - Musculoskeletal stiffness [None]

NARRATIVE: CASE EVENT DATE: 20201216
